FAERS Safety Report 4889068-6 (Version None)
Quarter: 2005Q4

REPORT INFORMATION
  Report Type: 
  Country: None (occurrence: None)
  Receive Date: 20051216
  Receipt Date: 20050920
  Transmission Date: 20060501
  Serious: No
  Sender: FDA-Public Use
  Company Number: USA0509108543

PATIENT
  Sex: Male

DRUGS (5)
  1. PROZAC [Suspect]
     Indication: OBSESSIVE-COMPULSIVE DISORDER
     Dates: start: 20050401, end: 20050506
  2. CIALIS [Suspect]
     Indication: SEXUAL DYSFUNCTION
     Dates: start: 20050101, end: 20050101
  3. NEURONTIN [Concomitant]
  4. KLONOPIN [Concomitant]
  5. AMBIEN [Concomitant]

REACTIONS (4)
  - ANORGASMIA [None]
  - DRUG INEFFECTIVE [None]
  - ERECTILE DYSFUNCTION [None]
  - LOSS OF LIBIDO [None]
